FAERS Safety Report 9855627 (Version 1)
Quarter: 2014Q1

REPORT INFORMATION
  Report Type: Spontaneous
  Country: US (occurrence: None)
  Receive Date: 20140129
  Receipt Date: 20140129
  Transmission Date: 20141002
  Serious: Yes (Death)
  Sender: FDA-Public Use
  Company Number: None

PATIENT
  Age: 46 Year
  Sex: Male
  Weight: 97.3 kg

DRUGS (19)
  1. CARBOPLATIN [Suspect]
  2. CETUXIMAB [Suspect]
  3. PACLITAXEL (TAXOL) [Suspect]
  4. METFORMIN [Concomitant]
  5. WELL BUTRINI [Concomitant]
  6. ASPIRIN [Concomitant]
  7. CARVEDIVOL [Concomitant]
  8. DIGOXIN [Concomitant]
  9. ENALAPRIL [Concomitant]
  10. FAUNOTIDINE [Concomitant]
  11. GAHAPEININ [Concomitant]
  12. HYDROCODONE [Concomitant]
  13. INSULIN GLARGINE [Concomitant]
  14. INSULIN LISPRO [Concomitant]
  15. LEVETRACETAN [Concomitant]
  16. NIACIN [Concomitant]
  17. OMEPRAZOLE [Concomitant]
  18. RANITIDINE [Concomitant]
  19. SERTRALINE [Concomitant]

REACTIONS (1)
  - Death [None]
